FAERS Safety Report 16571207 (Version 3)
Quarter: 2019Q3

REPORT INFORMATION
  Report Type: Spontaneous
  Country: GB (occurrence: GB)
  Receive Date: 20190715
  Receipt Date: 20190830
  Transmission Date: 20191004
  Serious: Yes (Other)
  Sender: FDA-Public Use
  Company Number: GB-BEH-2019104184

PATIENT

DRUGS (1)
  1. PRIVIGEN [Suspect]
     Active Substance: HUMAN IMMUNOGLOBULIN G
     Indication: HAEMOLYSIS
     Route: 042

REACTIONS (3)
  - Haemolysis [Unknown]
  - Product use in unapproved indication [Unknown]
  - No adverse event [Unknown]

NARRATIVE: CASE EVENT DATE: 20190702
